FAERS Safety Report 10565283 (Version 1)
Quarter: 2014Q4

REPORT INFORMATION
  Report Type: Spontaneous
  Country: US (occurrence: None)
  Receive Date: 20141104
  Receipt Date: 20141104
  Transmission Date: 20150529
  Serious: Yes (Other)
  Sender: FDA-Public Use
  Company Number: None

PATIENT
  Age: 13 Year
  Sex: Male

DRUGS (1)
  1. OMNITROPE [Suspect]
     Active Substance: SOMATROPIN
     Indication: BLOOD GROWTH HORMONE
     Dosage: OMNITROPE (SANDOZ) 10MG/1.5
     Route: 058
     Dates: start: 20140522

REACTIONS (1)
  - Injection site haemorrhage [None]

NARRATIVE: CASE EVENT DATE: 20141102
